FAERS Safety Report 4713546-3 (Version None)
Quarter: 2005Q3

REPORT INFORMATION
  Report Type: 
  Country: None (occurrence: None)
  Receive Date: 20050713
  Receipt Date: 20050704
  Transmission Date: 20060218
  Serious: Yes (Hospitalization)
  Sender: FDA-Public Use
  Company Number: GB-BRISTOL-MYERS SQUIBB COMPANY-13023775

PATIENT
  Age: 69 Year
  Sex: Female

DRUGS (9)
  1. PACLITAXEL [Suspect]
     Indication: NEOPLASM MALIGNANT
     Route: 042
     Dates: start: 20050419, end: 20050531
  2. PARAPLATIN [Concomitant]
     Indication: NEOPLASM MALIGNANT
     Dates: start: 20050419, end: 20050531
  3. IMIPRAMINE [Concomitant]
     Indication: BIPOLAR DISORDER
     Route: 048
     Dates: end: 20050608
  4. PRIADEL [Concomitant]
     Indication: BIPOLAR DISORDER
     Route: 048
  5. ACETAMINOPHEN [Concomitant]
  6. CODEINE [Concomitant]
  7. LOPERAMIDE [Concomitant]
  8. DEXAMETHASONE [Concomitant]
     Route: 048
  9. DOMPERIDONE [Concomitant]
     Indication: CHEMOTHERAPY

REACTIONS (3)
  - AUTONOMIC NEUROPATHY [None]
  - ORTHOSTATIC HYPOTENSION [None]
  - URINARY HESITATION [None]
